FAERS Safety Report 21317443 (Version 1)
Quarter: 2022Q3

REPORT INFORMATION
  Report Type: Spontaneous
  Country: US (occurrence: US)
  Receive Date: 20220911
  Receipt Date: 20220911
  Transmission Date: 20221026
  Serious: No
  Sender: FDA-Public Use
  Company Number: US-SA-SAC20220823002255

PATIENT
  Age: 51 Year
  Sex: Female

DRUGS (1)
  1. DUPIXENT [Suspect]
     Active Substance: DUPILUMAB
     Indication: Dermatitis atopic
     Dosage: INJECT 2 PENS, 600 MG UNDER THE SKIN ON DAY 1 (1X)
     Route: 058
     Dates: start: 20220805, end: 20220805

REACTIONS (1)
  - Ocular hyperaemia [Recovered/Resolved]
